FAERS Safety Report 8390896-3 (Version None)
Quarter: 2012Q2

REPORT INFORMATION
  Report Type: 
  Country: None (occurrence: None)
  Receive Date: 20120529
  Receipt Date: 20120524
  Transmission Date: 20120825
  Serious: Yes (Life-Threatening, Hospitalization, Other)
  Sender: FDA-Public Use
  Company Number: CA-ABBOTT-12P-028-0928831-00

PATIENT
  Sex: Male
  Weight: 113.5 kg

DRUGS (2)
  1. ZOLADEX [Suspect]
     Indication: PROSTATE CANCER
  2. LUPRON DEPOT [Suspect]
     Indication: PROSTATE CANCER
     Dates: start: 20110831

REACTIONS (5)
  - PULMONARY OEDEMA [None]
  - METASTASES TO BONE [None]
  - TREATMENT FAILURE [None]
  - HAEMOGLOBIN DECREASED [None]
  - PNEUMONIA [None]
